FAERS Safety Report 4341586-5 (Version None)
Quarter: 2004Q2

REPORT INFORMATION
  Report Type: 
  Country: None (occurrence: None)
  Receive Date: 20040415
  Receipt Date: 20040331
  Transmission Date: 20050107
  Serious: Yes (Other)
  Sender: FDA-Public Use
  Company Number: USA040363677

PATIENT
  Age: 77 Year
  Sex: Female

DRUGS (8)
  1. FORTEO [Suspect]
     Indication: OSTEOPOROSIS
     Dates: start: 20031001
  2. MEVACOR [Concomitant]
  3. PRINZIDE [Concomitant]
  4. GLUCOSAMINE [Concomitant]
  5. TYLENOL [Concomitant]
  6. VITAMIN CAP [Concomitant]
  7. CALCIUM [Concomitant]
  8. AMBIEN [Concomitant]

REACTIONS (4)
  - BLOOD PRESSURE INCREASED [None]
  - CARDIAC MURMUR [None]
  - MOVEMENT DISORDER [None]
  - PHARMACEUTICAL PRODUCT COMPLAINT [None]
